FAERS Safety Report 13873410 (Version 1)
Quarter: 2017Q3

REPORT INFORMATION
  Report Type: Spontaneous
  Country: PE (occurrence: PE)
  Receive Date: 20170816
  Receipt Date: 20170816
  Transmission Date: 20171127
  Serious: Yes (Hospitalization, Other)
  Sender: FDA-Public Use
  Company Number: PE-SA-2017SA145747

PATIENT
  Age: 35 Year
  Sex: Male

DRUGS (3)
  1. AUBAGIO [Suspect]
     Active Substance: TERIFLUNOMIDE
     Indication: MULTIPLE SCLEROSIS
     Route: 048
     Dates: start: 20170624, end: 20170707
  2. AUBAGIO [Suspect]
     Active Substance: TERIFLUNOMIDE
     Indication: MULTIPLE SCLEROSIS
     Route: 048
     Dates: start: 20160604, end: 20170607
  3. AUBAGIO [Suspect]
     Active Substance: TERIFLUNOMIDE
     Indication: MULTIPLE SCLEROSIS
     Route: 048
     Dates: start: 20170716

REACTIONS (6)
  - Pneumonia [Recovered/Resolved]
  - Eye pain [Recovered/Resolved]
  - Stress [Unknown]
  - Optic neuritis [Recovered/Resolved]
  - Immunodeficiency [Unknown]
  - Tonsillitis [Recovered/Resolved]

NARRATIVE: CASE EVENT DATE: 20170607
